FAERS Safety Report 5085467-0 (Version None)
Quarter: 2006Q3

REPORT INFORMATION
  Report Type: 
  Country: None (occurrence: None)
  Receive Date: 20060731
  Receipt Date: 20060320
  Transmission Date: 20061208
  Serious: Yes (Other)
  Sender: FDA-Public Use
  Company Number: 200610667BWH

PATIENT
  Age: 76 Year
  Sex: Female

DRUGS (3)
  1. AVELOX [Suspect]
     Indication: UPPER RESPIRATORY TRACT INFECTION
     Dosage: 400 MG, QD, ORAL
     Route: 048
     Dates: start: 20041202
  2. CIPRO [Concomitant]
  3. LEVAQUIN [Concomitant]

REACTIONS (1)
  - TENDON RUPTURE [None]
